FAERS Safety Report 9789671 (Version 1)
Quarter: 2013Q4

REPORT INFORMATION
  Report Type: Spontaneous
  Country: US (occurrence: US)
  Receive Date: 20131231
  Receipt Date: 20131231
  Transmission Date: 20140711
  Serious: No
  Sender: FDA-Public Use
  Company Number: US-B.I. PHARMACEUTICALS,INC./RIDGEFIELD-2013-BI-42983BP

PATIENT
  Age: 53 Year
  Sex: Male
  Weight: 77 kg

DRUGS (1)
  1. COMBIVENT [Suspect]
     Dosage: FORMULATION: RESPIMAT INHALATION SPRAY, STRENGTH: 20 MCG / 100 MCG; DAILY DOSE: 80 MCG/400 MCG
     Route: 055
     Dates: start: 20131017, end: 20131018

REACTIONS (4)
  - Cough [Recovered/Resolved]
  - Dyspnoea [Recovered/Resolved]
  - Skeletal injury [Recovered/Resolved]
  - Constipation [Recovered/Resolved]
